FAERS Safety Report 5522355-7 (Version None)
Quarter: 2007Q4

REPORT INFORMATION
  Report Type: 
  Country: None (occurrence: None)
  Receive Date: 20071120
  Receipt Date: 20071114
  Transmission Date: 20080405
  Serious: Yes (Death)
  Sender: FDA-Public Use
  Company Number: IT-BRACCO-BCM-001378

PATIENT
  Sex: Male

DRUGS (2)
  1. MULTIHANCE [Suspect]
     Indication: POSTOPERATIVE CARE
     Route: 042
     Dates: start: 20071113, end: 20071113
  2. MULTIHANCE [Suspect]
     Indication: NUCLEAR MAGNETIC RESONANCE IMAGING BRAIN
     Route: 042
     Dates: start: 20071113, end: 20071113

REACTIONS (8)
  - ACUTE MYOCARDIAL INFARCTION [None]
  - AGITATION [None]
  - COUGH [None]
  - HYPOTENSION [None]
  - LOCALISED OEDEMA [None]
  - LOSS OF CONSCIOUSNESS [None]
  - MUSCLE RIGIDITY [None]
  - SHOCK [None]
